FAERS Safety Report 8578033 (Version 2)
Quarter: 2012Q4

REPORT INFORMATION
  Report Type: 
  Country: US (occurrence: US)
  Receive Date: 20120524
  Receipt Date: 20120919
  Transmission Date: 20130627
  Serious: Yes (Hospitalization)
  Sender: FDA-Public Use
  Company Number: US-TEVA-338941USA

PATIENT
  Age: 61 Year
  Sex: Female

DRUGS (1)
  1. COPAXONE [Suspect]
     Indication: MULTIPLE SCLEROSIS
     Route: 058

REACTIONS (5)
  - Aspiration [Recovered/Resolved]
  - White blood cell count increased [Recovered/Resolved]
  - Musculoskeletal disorder [Not Recovered/Not Resolved]
  - Unresponsive to stimuli [Recovered/Resolved]
  - Multiple sclerosis [Unknown]
